FAERS Safety Report 6268940-9 (Version None)
Quarter: 2009Q3

REPORT INFORMATION
  Report Type: 
  Country: None (occurrence: None)
  Receive Date: 20090714
  Receipt Date: 20090714
  Transmission Date: 20100115
  Serious: Yes (Hospitalization)
  Sender: FDA-Public Use
  Company Number: None

PATIENT
  Age: 60 Year
  Sex: Male
  Weight: 123 kg

DRUGS (7)
  1. LITHIUM CARBONATE [Suspect]
     Indication: BIPOLAR DISORDER
     Dosage: 900MG QHS PO CHRONIC
     Route: 048
  2. BENZTROPINE MESYLATE [Suspect]
  3. CELEXA [Concomitant]
  4. CLONAZEPAM [Concomitant]
  5. LITHIUM CARBONATE [Concomitant]
  6. LORTAB [Concomitant]
  7. THIOTHIXENE [Concomitant]

REACTIONS (3)
  - ANTIPSYCHOTIC DRUG LEVEL INCREASED [None]
  - DIZZINESS [None]
  - FALL [None]
